FAERS Safety Report 19327141 (Version 2)
Quarter: 2021Q2

REPORT INFORMATION
  Report Type: Report from Study
  Country: RS (occurrence: RS)
  Receive Date: 20210528
  Receipt Date: 20210601
  Transmission Date: 20210717
  Serious: Yes (Other)
  Sender: FDA-Public Use
  Company Number: RS-PFIZER INC-2021572401

PATIENT
  Age: 43 Year
  Sex: Female
  Weight: 52 kg

DRUGS (1)
  1. SOMATROPIN. [Suspect]
     Active Substance: SOMATROPIN
     Indication: HORMONE THERAPY
     Dosage: UNK

REACTIONS (1)
  - Glucocorticoid deficiency [Recovered/Resolved]
